FAERS Safety Report 10622492 (Version 1)
Quarter: 2014Q4

REPORT INFORMATION
  Report Type: Spontaneous
  Country: US (occurrence: None)
  Receive Date: 20141201
  Receipt Date: 20141201
  Transmission Date: 20150529
  Serious: Yes (Life-Threatening, Hospitalization, Other)
  Sender: FDA-Public Use
  Company Number: None

PATIENT
  Age: 57 Year
  Sex: Male
  Weight: 72.9 kg

DRUGS (2)
  1. METOPROLOL [Suspect]
     Active Substance: METOPROLOL
     Indication: HYPERTENSION
     Route: 048
     Dates: start: 20120914, end: 20140818
  2. METOPROLOL [Suspect]
     Active Substance: METOPROLOL
     Indication: CARDIAC FAILURE CONGESTIVE
     Route: 048
     Dates: start: 20120914, end: 20140818

REACTIONS (7)
  - Lung disorder [None]
  - Nodal rhythm [None]
  - Sinus bradycardia [None]
  - Atrioventricular dissociation [None]
  - Sepsis [None]
  - Chest X-ray abnormal [None]
  - Hypotension [None]

NARRATIVE: CASE EVENT DATE: 20140818
